FAERS Safety Report 7442577-8 (Version None)
Quarter: 2011Q2

REPORT INFORMATION
  Report Type: 
  Country: None (occurrence: None)
  Receive Date: 20110428
  Receipt Date: 20110422
  Transmission Date: 20111010
  Serious: Yes (Other)
  Sender: FDA-Public Use
  Company Number: US-AMGEN-USASP2011021414

PATIENT
  Sex: Female

DRUGS (3)
  1. NEULASTA [Suspect]
     Indication: CHEMOTHERAPY
     Dates: start: 20070101
  2. NEUPOGEN [Suspect]
     Indication: CHEMOTHERAPY
     Dosage: UNK
     Dates: start: 20110101
  3. CHEMOTHERAPEUTICS NOS [Concomitant]

REACTIONS (2)
  - OVARIAN CANCER RECURRENT [None]
  - LABORATORY TEST ABNORMAL [None]
